FAERS Safety Report 20198664 (Version 9)
Quarter: 2022Q2

REPORT INFORMATION
  Report Type: Spontaneous
  Country: PL (occurrence: PL)
  Receive Date: 20211217
  Receipt Date: 20220627
  Transmission Date: 20220720
  Serious: Yes (Hospitalization, Disabling, Other)
  Sender: FDA-Public Use
  Company Number: PL-LUPIN PHARMACEUTICALS INC.-2021-24580

PATIENT
  Age: 83 Year
  Sex: Female

DRUGS (43)
  1. ZOLPIDEM [Interacting]
     Active Substance: ZOLPIDEM TARTRATE
     Indication: Product used for unknown indication
     Dosage: 10 MILLILITRE PER KILOGRAM, QD
     Route: 065
  2. ZOLPIDEM [Interacting]
     Active Substance: ZOLPIDEM TARTRATE
     Dosage: 100 MG, QD
     Route: 065
  3. RAMIPRIL [Interacting]
     Active Substance: RAMIPRIL
     Indication: Product used for unknown indication
     Dosage: 5 MILLIGRAM, QD
     Route: 065
  4. RAMIPRIL [Interacting]
     Active Substance: RAMIPRIL
     Indication: Cardiac failure
  5. ATORVASTATIN CALCIUM [Interacting]
     Active Substance: ATORVASTATIN CALCIUM
     Indication: Product used for unknown indication
     Dosage: 20 MILLIGRAM, QD
     Route: 065
  6. GLICLAZIDE [Interacting]
     Active Substance: GLICLAZIDE
     Indication: Product used for unknown indication
     Dosage: 60 MILLIGRAM, TID
     Route: 065
  7. DONEPEZIL [Interacting]
     Active Substance: DONEPEZIL
     Indication: Product used for unknown indication
     Dosage: 5 MILLIGRAM, QD
     Route: 065
  8. METFORMIN [Interacting]
     Active Substance: METFORMIN HYDROCHLORIDE
     Indication: Product used for unknown indication
     Dosage: UNK
     Route: 065
  9. METOCLOPRAMIDE [Interacting]
     Active Substance: METOCLOPRAMIDE
     Indication: Product used for unknown indication
     Dosage: 10 MILLIGRAM, 2 TABLETS AS NEEDED, IN CASE OF CONSTIPATION, BUT FOR MANY MONTHS (10 MG,1 AS NECESSAR
     Route: 065
  10. LEVOTHYROXINE [Interacting]
     Active Substance: LEVOTHYROXINE
     Indication: Product used for unknown indication
     Dosage: 100 MICROGRAM, QD
     Route: 065
  11. LEVOTHYROXINE [Interacting]
     Active Substance: LEVOTHYROXINE
     Dosage: 100 MICROGRAM, QD
     Route: 065
  12. ALBUTEROL SULFATE [Interacting]
     Active Substance: ALBUTEROL SULFATE
     Indication: Product used for unknown indication
     Dosage: 100 MICROGRAM, QD
  13. POTASSIUM CHLORIDE [Interacting]
     Active Substance: POTASSIUM CHLORIDE
     Indication: Product used for unknown indication
     Dosage: 1 DF EVERY 2 DAYS/1 DF EVERY 2 DAYS/391 MG K+ (1 DOSAGE FORM)
     Route: 065
  14. POTASSIUM CHLORIDE [Interacting]
     Active Substance: POTASSIUM CHLORIDE
     Dosage: 391 MILLIGRAM, BID
     Route: 065
  15. TRAMADOL [Interacting]
     Active Substance: TRAMADOL
     Indication: Product used for unknown indication
     Dosage: 100 MG (AS NEEDED)
     Route: 048
  16. TRAMADOL [Interacting]
     Active Substance: TRAMADOL
     Indication: Pain
     Dosage: 50 MG (IN CASE OF PAIN)
     Route: 048
  17. CITALOPRAM [Interacting]
     Active Substance: CITALOPRAM HYDROBROMIDE
     Indication: Depression
     Dosage: 40 MG, QD
     Route: 065
  18. HYDROXYZINE [Interacting]
     Active Substance: HYDROXYZINE HYDROCHLORIDE
     Indication: Product used for unknown indication
     Dosage: 25 MILLIGRAM, QD (AS NEEDED, AVERAGE 2 X /24 H (25 MG,1 AS NECESSARY) )
     Route: 065
  19. HYDROXYZINE [Interacting]
     Active Substance: HYDROXYZINE HYDROCHLORIDE
     Dosage: 40 MG, QD
     Route: 065
  20. ALPRAZOLAM [Interacting]
     Active Substance: ALPRAZOLAM
     Indication: Product used for unknown indication
     Dosage: 0.5 MILLIGRAM, QD
     Route: 065
  21. ALPRAZOLAM [Interacting]
     Active Substance: ALPRAZOLAM
     Dosage: 0.5 MG, BID
     Route: 065
  22. SPIRONOLACTONE [Interacting]
     Active Substance: SPIRONOLACTONE
     Indication: Product used for unknown indication
     Dosage: 100 MILLIGRAM, QD
     Route: 065
  23. BETAHISTINE [Interacting]
     Active Substance: BETAHISTINE
     Indication: Product used for unknown indication
     Dosage: 24 MG, QD
     Route: 065
  24. HYDROCHLOROTHIAZIDE [Interacting]
     Active Substance: HYDROCHLOROTHIAZIDE
     Indication: Product used for unknown indication
     Dosage: 25 MG, QD
     Route: 065
  25. FUROSEMIDE [Interacting]
     Active Substance: FUROSEMIDE
     Indication: Product used for unknown indication
     Dosage: 40 MG (3 TABLETS EVERY 2 DAYS (40 MG,2 D))  40 MG, TID (3/DAY) (120 MG,1 D)
     Route: 065
  26. VITAMIN D3 [Interacting]
     Active Substance: CHOLECALCIFEROL
     Indication: Product used for unknown indication
     Dosage: 2000 UNK, QD
     Route: 065
  27. TORSEMIDE [Interacting]
     Active Substance: TORSEMIDE
     Indication: Product used for unknown indication
     Dosage: 5 MG, QD
     Route: 065
  28. DABIGATRAN [Interacting]
     Active Substance: DABIGATRAN
     Indication: Product used for unknown indication
     Dosage: 110 MG, BID
     Route: 065
  29. OMEPRAZOLE [Interacting]
     Active Substance: OMEPRAZOLE
     Indication: Product used for unknown indication
     Dosage: 20 MG, BID
     Route: 065
  30. OMEPRAZOLE [Interacting]
     Active Substance: OMEPRAZOLE
     Dosage: 1-1-0 (100 MG,1)
     Route: 065
  31. METOPROLOL [Interacting]
     Active Substance: METOPROLOL
     Indication: Product used for unknown indication
     Dosage: 50 MG, BID (1-0-1)
     Route: 065
  32. METOPROLOL [Interacting]
     Active Substance: METOPROLOL
     Indication: Hypertension
  33. ALLOPURINOL [Interacting]
     Active Substance: ALLOPURINOL
     Indication: Product used for unknown indication
     Dosage: 100 MG, QD (1-0-0)
     Route: 065
  34. ALLOPURINOL [Interacting]
     Active Substance: ALLOPURINOL
     Dosage: 100 MG, QD (1-0-0)
     Route: 065
  35. ISOSORBIDE MONONITRATE [Interacting]
     Active Substance: ISOSORBIDE MONONITRATE
     Indication: Product used for unknown indication
     Dosage: 50 MG, BID 50 MG, AD HOC, USUALLY,1-2 TABLETS A DAY), 50 MG, BID (AS NEEDED, AV. ONCE/TWICE DAILY) (
     Route: 065
  36. ACETAMINOPHEN [Interacting]
     Active Substance: ACETAMINOPHEN
     Indication: Product used for unknown indication
     Dosage: 500 MG, BID (1-0-1)
     Route: 065
  37. ACETAMINOPHEN [Interacting]
     Active Substance: ACETAMINOPHEN
     Dosage: 500 MG, QD (0-0-1)
     Route: 065
  38. DENOSUMAB [Interacting]
     Active Substance: DENOSUMAB
     Indication: Product used for unknown indication
     Dosage: 60 MG
     Route: 065
  39. BENSERAZIDE\LEVODOPA [Interacting]
     Active Substance: BENSERAZIDE\LEVODOPA
     Indication: Product used for unknown indication
     Dosage: 187.5 MG, TID  (62.5 MG,1 IN 8 HR)
     Route: 065
  40. DEXTROSE [Interacting]
     Active Substance: DEXTROSE
     Indication: Product used for unknown indication
     Dosage: 1.5 MG (1.5+125 MG) AS NEEDED (1.5 MG,AS NECESSARY)
     Route: 065
  41. QUETIAPINE [Interacting]
     Active Substance: QUETIAPINE
     Indication: Product used for unknown indication
     Dosage: 25 MILLIGRAM, QD
     Route: 065
  42. VORTIOXETINE [Interacting]
     Active Substance: VORTIOXETINE
     Indication: Product used for unknown indication
     Dosage: 10 MILLIGRAM, QD
     Route: 065
  43. AMLODIPINE BESYLATE [Concomitant]
     Active Substance: AMLODIPINE BESYLATE
     Indication: Hypertension
     Dosage: 1 DOSAGE FORM, QD
     Route: 048

REACTIONS (45)
  - Drug interaction [Recovered/Resolved]
  - Dizziness [Recovering/Resolving]
  - Drug dependence [Unknown]
  - Syncope [Recovering/Resolving]
  - Fall [Recovering/Resolving]
  - Abdominal pain upper [Unknown]
  - Nausea [Unknown]
  - Constipation [Unknown]
  - Arthralgia [Unknown]
  - Pruritus [Unknown]
  - Initial insomnia [Unknown]
  - Hyponatraemia [Unknown]
  - Urinary retention [Unknown]
  - Dysuria [Unknown]
  - Dementia [Unknown]
  - Hypotension [Recovering/Resolving]
  - Hypoglycaemia [Recovered/Resolved]
  - Melaena [Unknown]
  - Femur fracture [Unknown]
  - Pancreatitis acute [Unknown]
  - Cholecystectomy [Unknown]
  - Diverticulum intestinal [Unknown]
  - Gastric polyps [Unknown]
  - Appendicectomy [Unknown]
  - Thrombophlebitis [Unknown]
  - Atrioventricular block first degree [Recovered/Resolved]
  - Depression [Unknown]
  - Parkinsonism [Recovering/Resolving]
  - Cognitive disorder [Unknown]
  - Osteoporosis [Unknown]
  - Loss of personal independence in daily activities [Unknown]
  - Hyperkalaemia [Unknown]
  - Medication error [Unknown]
  - Mobility decreased [Recovering/Resolving]
  - Multiple drug therapy [Unknown]
  - Diabetes mellitus inadequate control [Unknown]
  - Neuroglycopenia [Unknown]
  - Deep vein thrombosis [Unknown]
  - Hiatus hernia [Unknown]
  - Gastrointestinal disorder [Unknown]
  - Peripheral circulatory failure [Unknown]
  - Stupor [Unknown]
  - Sedation [Recovering/Resolving]
  - Abdominal pain upper [Unknown]
  - Product use issue [Unknown]

NARRATIVE: CASE EVENT DATE: 20210101
